FAERS Safety Report 5353099-2 (Version None)
Quarter: 2007Q2

REPORT INFORMATION
  Report Type: 
  Country: None (occurrence: None)
  Receive Date: 20070606
  Receipt Date: 20070208
  Transmission Date: 20071010
  Serious: Yes (Hospitalization)
  Sender: FDA-Public Use
  Company Number: WAES0508TWN00014

PATIENT

DRUGS (1)
  1. COZAAR [Suspect]
     Indication: CARDIAC FAILURE
     Route: 048

REACTIONS (2)
  - ABDOMINAL DISCOMFORT [None]
  - MYOCARDIAL ISCHAEMIA [None]
